FAERS Safety Report 7346512-2 (Version None)
Quarter: 2011Q1

REPORT INFORMATION
  Report Type: 
  Country: None (occurrence: None)
  Receive Date: 20110311
  Receipt Date: 20110307
  Transmission Date: 20110831
  Serious: Yes (Other)
  Sender: FDA-Public Use
  Company Number: US-BAYER-2011-021155

PATIENT

DRUGS (3)
  1. OCELLA [Suspect]
     Dosage: UNK
  2. YAZ [Suspect]
     Dosage: UNK
  3. YASMIN [Suspect]
     Dosage: UNK

REACTIONS (5)
  - PAIN [None]
  - EMOTIONAL DISTRESS [None]
  - PULMONARY EMBOLISM [None]
  - INJURY [None]
  - ANXIETY [None]
